FAERS Safety Report 8042220-3 (Version None)
Quarter: 2012Q1

REPORT INFORMATION
  Report Type: 
  Country: None (occurrence: None)
  Receive Date: 20120112
  Receipt Date: 20120110
  Transmission Date: 20120608
  Serious: Yes (Hospitalization, Other)
  Sender: FDA-Public Use
  Company Number: US-ROCHE-793573

PATIENT
  Sex: Male
  Weight: 72.64 kg

DRUGS (3)
  1. IBUPROFEN (ADVIL) [Concomitant]
  2. ACCUTANE [Suspect]
     Indication: ACNE
     Route: 065
     Dates: start: 19821001, end: 19830330
  3. TORADOL [Concomitant]

REACTIONS (6)
  - GASTRITIS [None]
  - ANAL FISTULA [None]
  - INFLAMMATORY BOWEL DISEASE [None]
  - CROHN'S DISEASE [None]
  - OSTEOPENIA [None]
  - IRRITABLE BOWEL SYNDROME [None]
